FAERS Safety Report 22072024 (Version 2)
Quarter: 2024Q3

REPORT INFORMATION
  Report Type: Spontaneous
  Country: BR (occurrence: BR)
  Receive Date: 20230308
  Receipt Date: 20240912
  Transmission Date: 20241016
  Serious: No
  Sender: CELLTRION
  Company Number: BR-CELLTRION INC.-2023BR004907

PATIENT

DRUGS (2)
  1. INFLIXIMAB [Suspect]
     Active Substance: INFLIXIMAB
     Indication: Uveitis
     Route: 042
  2. INFLIXIMAB [Suspect]
     Active Substance: INFLIXIMAB
     Indication: Sjogren^s syndrome

REACTIONS (1)
  - Off label use [Unknown]
